FAERS Safety Report 17186976 (Version 2)
Quarter: 2020Q1

REPORT INFORMATION
  Report Type: Report from Study
  Country: US (occurrence: US)
  Receive Date: 20191220
  Receipt Date: 20200102
  Transmission Date: 20200409
  Serious: Yes (Hospitalization)
  Sender: FDA-Public Use
  Company Number: US-EISAI MEDICAL RESEARCH-EC-2019-067472

PATIENT
  Age: 67 Year
  Sex: Male

DRUGS (1)
  1. LENVIMA [Suspect]
     Active Substance: LENVATINIB
     Indication: HEPATIC CANCER
     Route: 048
     Dates: start: 20191209, end: 201912

REACTIONS (5)
  - Ammonia increased [Unknown]
  - Confusional state [Recovered/Resolved with Sequelae]
  - Malignant neoplasm progression [Unknown]
  - Asthenia [Unknown]
  - Mental impairment [Unknown]

NARRATIVE: CASE EVENT DATE: 201912
